FAERS Safety Report 20173298 (Version 3)
Quarter: 2022Q1

REPORT INFORMATION
  Report Type: Report from Study
  Country: CO (occurrence: CO)
  Receive Date: 20211211
  Receipt Date: 20220121
  Transmission Date: 20220424
  Serious: Yes (Hospitalization)
  Sender: FDA-Public Use
  Company Number: CO-NOVARTISPH-NVSC2021CO282740

PATIENT
  Sex: Female

DRUGS (1)
  1. ELTROMBOPAG OLAMINE [Suspect]
     Active Substance: ELTROMBOPAG OLAMINE
     Indication: Immune thrombocytopenia
     Dosage: 100 MG, QD (STARTED AT BEGINNING OF DECEMBER)
     Route: 048

REACTIONS (4)
  - Platelet count decreased [Unknown]
  - Incorrect dose administered [Unknown]
  - Product supply issue [Unknown]
  - Anxiety [Unknown]
